FAERS Safety Report 16202733 (Version 1)
Quarter: 2019Q2

REPORT INFORMATION
  Report Type: Spontaneous
  Country: US (occurrence: US)
  Receive Date: 20190416
  Receipt Date: 20190416
  Transmission Date: 20190711
  Serious: No
  Sender: FDA-Public Use
  Company Number: US-PFIZER INC-2019160799

PATIENT
  Sex: Female

DRUGS (1)
  1. GABAPENTIN. [Suspect]
     Active Substance: GABAPENTIN
     Indication: NEUROPATHY PERIPHERAL
     Dosage: 2400 MG, DAILY [800MG / QTY(QUANTITY) 90 / DAYS SUPPLY 30]

REACTIONS (4)
  - Therapeutic product effect incomplete [Unknown]
  - Hypoaesthesia [Unknown]
  - Hunger [Unknown]
  - Pain [Unknown]
